FAERS Safety Report 10129624 (Version 1)
Quarter: 2014Q2

REPORT INFORMATION
  Report Type: Spontaneous
  Country: US (occurrence: US)
  Receive Date: 20140428
  Receipt Date: 20140428
  Transmission Date: 20141212
  Serious: No
  Sender: FDA-Public Use
  Company Number: US-PFIZER INC-2014112956

PATIENT
  Age: 70 Year
  Sex: Female
  Weight: 58.05 kg

DRUGS (4)
  1. GLUCOTROL XL [Suspect]
     Indication: DIABETES MELLITUS
     Dosage: 10 MG, 2X/DAY
     Dates: start: 201403
  2. GLUCOTROL XL [Suspect]
     Dosage: 20 MG, 2X/DAY
     Dates: start: 2014
  3. JANUVIA [Suspect]
     Indication: DIABETES MELLITUS
     Dosage: 25 MG, UNK
     Dates: start: 201404
  4. NIFEDIPINE [Concomitant]
     Indication: HYPERTENSION
     Dosage: 90 MG, DAILY

REACTIONS (2)
  - Incorrect dose administered [Unknown]
  - Drug ineffective [Unknown]
